FAERS Safety Report 8421216-3 (Version None)
Quarter: 2012Q2

REPORT INFORMATION
  Report Type: 
  Country: None (occurrence: None)
  Receive Date: 20120608
  Receipt Date: 20120531
  Transmission Date: 20120825
  Serious: Yes (Hospitalization)
  Sender: FDA-Public Use
  Company Number: KR-NAPPMUNDI-MAG-2012-0002185

PATIENT
  Sex: Male

DRUGS (2)
  1. OXYCODONE HCL/NALOXONE HCL PR 20/10MG [Suspect]
     Indication: PAIN
     Dosage: UNK
     Route: 048
     Dates: start: 20120523
  2. OXYCODONE HCL [Suspect]
     Indication: PAIN
     Dosage: UNK
     Route: 048
     Dates: start: 20120523

REACTIONS (3)
  - CONFUSIONAL STATE [None]
  - HYPERTENSION [None]
  - ABDOMINAL PAIN [None]
